FAERS Safety Report 19086844 (Version 1)
Quarter: 2021Q2

REPORT INFORMATION
  Report Type: Spontaneous
  Country: US (occurrence: US)
  Receive Date: 20210401
  Receipt Date: 20210401
  Transmission Date: 20210717
  Serious: Yes (Hospitalization)
  Sender: FDA-Public Use
  Company Number: None

PATIENT
  Age: 66 Year
  Sex: Male

DRUGS (1)
  1. APIXABAN (APIXABAN 5MG TAB) [Suspect]
     Active Substance: APIXABAN
     Indication: THROMBOSIS
     Dates: start: 20210309, end: 20210323

REACTIONS (3)
  - Drug interaction [None]
  - Haemoptysis [None]
  - Haemorrhage [None]

NARRATIVE: CASE EVENT DATE: 20210323
